FAERS Safety Report 5114873-0 (Version None)
Quarter: 2006Q3

REPORT INFORMATION
  Report Type: 
  Country: None (occurrence: None)
  Receive Date: 20060921
  Receipt Date: 20060905
  Transmission Date: 20061208
  Serious: Yes (Life-Threatening, Other)
  Sender: FDA-Public Use
  Company Number: US017839

PATIENT
  Age: 43 Year
  Sex: Female

DRUGS (5)
  1. TRISENOX [Suspect]
     Indication: ACUTE PROMYELOCYTIC LEUKAEMIA
     Dosage: 8.19 MG QD INTRAVENOUS DRIP
     Route: 041
     Dates: start: 20060306, end: 20060504
  2. TRISENOX [Suspect]
     Indication: ACUTE PROMYELOCYTIC LEUKAEMIA
     Dosage: 8.19 MG QD INTRAVENOUS DRIP
     Route: 041
     Dates: start: 20060613, end: 20060707
  3. POTASSIUM CHLORIDE [Concomitant]
  4. TEPRENONE [Concomitant]
  5. MAGNESIUM OXIDE [Concomitant]

REACTIONS (4)
  - ELECTROCARDIOGRAM QT CORRECTED INTERVAL PROLONGED [None]
  - ELECTROCARDIOGRAM QT PROLONGED [None]
  - HEPATIC FUNCTION ABNORMAL [None]
  - WHITE BLOOD CELL COUNT DECREASED [None]
